FAERS Safety Report 4738422-1 (Version None)
Quarter: 2005Q3

REPORT INFORMATION
  Report Type: 
  Country: None (occurrence: None)
  Receive Date: 20050809
  Receipt Date: 20050728
  Transmission Date: 20060218
  Serious: Yes (Hospitalization)
  Sender: FDA-Public Use
  Company Number: FRWYE863228JUL05

PATIENT
  Age: 36 Year
  Sex: Male
  Weight: 73 kg

DRUGS (1)
  1. ENBREL [Suspect]
     Indication: ANKYLOSING SPONDYLITIS
     Route: 058
     Dates: start: 20040101, end: 20050530

REACTIONS (3)
  - IRIDOCYCLITIS [None]
  - IRIS ADHESIONS [None]
  - MACULAR OEDEMA [None]
